FAERS Safety Report 14838593 (Version 1)
Quarter: 2018Q2

REPORT INFORMATION
  Report Type: Spontaneous
  Country: DE (occurrence: DE)
  Receive Date: 20180502
  Receipt Date: 20180502
  Transmission Date: 20180711
  Serious: Yes (Hospitalization)
  Sender: FDA-Public Use
  Company Number: DE-MYLANLABS-2018M1027508

PATIENT
  Age: 63 Year
  Sex: Male

DRUGS (3)
  1. INTERFERON ALFA NOS [Suspect]
     Active Substance: INTERFERON ALFA-2A OR INTERFERON ALFA-2B
     Indication: PANCREATIC CARCINOMA
     Dosage: UNK,3, 1 WEEK
     Route: 058
  2. CISPLATIN. [Suspect]
     Active Substance: CISPLATIN
     Indication: PANCREATIC CARCINOMA
     Dosage: 30 MG/M2, QW
     Route: 065
     Dates: start: 200411
  3. FLUOROURACIL. [Concomitant]
     Active Substance: FLUOROURACIL
     Indication: PANCREATIC CARCINOMA
     Dosage: 200 MG/M2, QD,CONTINUOUS INFUSION
     Dates: start: 200411

REACTIONS (10)
  - Electrocardiogram QT prolonged [Recovered/Resolved]
  - Hypocalcaemia [Recovered/Resolved]
  - Electrocardiogram ST segment depression [Recovered/Resolved]
  - Dehydration [Recovered/Resolved]
  - Paraesthesia [Recovered/Resolved]
  - Trousseau^s sign [Recovered/Resolved]
  - Loss of consciousness [Recovered/Resolved]
  - Diarrhoea [Recovered/Resolved]
  - Tetany [Recovered/Resolved]
  - Hypokalaemia [Recovered/Resolved]

NARRATIVE: CASE EVENT DATE: 2004
